FAERS Safety Report 24029680 (Version 1)
Quarter: 2024Q2

REPORT INFORMATION
  Report Type: Spontaneous
  Country: US (occurrence: US)
  Receive Date: 20240628
  Receipt Date: 20240628
  Transmission Date: 20240716
  Serious: Yes (Death, Hospitalization)
  Sender: FDA-Public Use
  Company Number: US-BEIGENE-BGN-2024-009885

PATIENT

DRUGS (10)
  1. BRUKINSA [Suspect]
     Active Substance: ZANUBRUTINIB
     Indication: Chronic lymphocytic leukaemia
  2. NORVASC [Concomitant]
     Active Substance: AMLODIPINE BESYLATE
  3. AMOXICILLIN [Concomitant]
     Active Substance: AMOXICILLIN
  4. VITAMINS [Concomitant]
     Active Substance: VITAMINS
  5. XARELTO [Concomitant]
     Active Substance: RIVAROXABAN
  6. LIPITOR [Concomitant]
     Active Substance: ATORVASTATIN CALCIUM
  7. VITAMIN B COMPLEX [Concomitant]
     Active Substance: CYANOCOBALAMIN\DEXPANTHENOL\NIACINAMIDE\PYRIDOXINE HYDROCHLORIDE\RIBOFLAVIN 5^-PHOSPHATE SODIUM\THIA
  8. AMIODARONE [Concomitant]
     Active Substance: AMIODARONE
  9. COZAAR [Concomitant]
     Active Substance: LOSARTAN POTASSIUM
  10. SENNA [Concomitant]
     Active Substance: SENNA LEAF\SENNOSIDES\SENNOSIDES A AND B

REACTIONS (7)
  - Dizziness [Fatal]
  - Subdural haemorrhage [Fatal]
  - Cerebral haemorrhage [Fatal]
  - Subarachnoid haemorrhage [Fatal]
  - Loss of personal independence in daily activities [Fatal]
  - Malaise [Fatal]
  - Asthenia [Fatal]

NARRATIVE: CASE EVENT DATE: 20231209
